FAERS Safety Report 25927152 (Version 1)
Quarter: 2025Q4

REPORT INFORMATION
  Report Type: Spontaneous
  Country: US (occurrence: US)
  Receive Date: 20251015
  Receipt Date: 20251015
  Transmission Date: 20260118
  Serious: No
  Sender: Onesource Specialty Pharma
  Company Number: US-STRIDES ARCOLAB LIMITED-2025OS000016

PATIENT
  Age: 75 Year
  Sex: Female

DRUGS (4)
  1. MYCOPHENOLATE MOFETIL [Interacting]
     Active Substance: MYCOPHENOLATE MOFETIL
     Indication: Immune-mediated myositis
     Dosage: UNK
     Route: 065
  2. OMEPRAZOLE [Interacting]
     Active Substance: OMEPRAZOLE
     Indication: Immune-mediated myositis
     Dosage: UNK
     Route: 065
  3. HERBALS [Interacting]
     Active Substance: HERBALS
     Indication: Hyperlipidaemia
     Dosage: UNK
     Route: 065
  4. PREDNISONE [Interacting]
     Active Substance: PREDNISONE
     Indication: Immune-mediated myositis
     Dosage: UNK
     Route: 065

REACTIONS (3)
  - Immunosuppressant drug level decreased [Unknown]
  - Drug interaction [Unknown]
  - Off label use [Unknown]
